FAERS Safety Report 21031578 (Version 1)
Quarter: 2022Q3

REPORT INFORMATION
  Report Type: Spontaneous
  Country: US (occurrence: None)
  Receive Date: 20220701
  Receipt Date: 20220701
  Transmission Date: 20221026
  Serious: No
  Sender: FDA-Public Use
  Company Number: US-ROCHE-2892695

PATIENT
  Sex: Male

DRUGS (2)
  1. ACTEMRA [Suspect]
     Active Substance: TOCILIZUMAB
     Indication: Rheumatoid arthritis
     Dosage: 400MG/20ML
     Route: 042
     Dates: start: 202012, end: 202104
  2. ACTEMRA [Suspect]
     Active Substance: TOCILIZUMAB
     Dosage: STRENGTH: 400MG/20M ML
     Route: 042
     Dates: start: 202009

REACTIONS (2)
  - Joint swelling [Unknown]
  - Arthralgia [Unknown]
